FAERS Safety Report 13437288 (Version 2)
Quarter: 2017Q4

REPORT INFORMATION
  Report Type: Spontaneous
  Country: JP (occurrence: JP)
  Receive Date: 20170413
  Receipt Date: 20171018
  Transmission Date: 20180320
  Serious: Yes (Death, Hospitalization)
  Sender: FDA-Public Use
  Company Number: JP-ELI_LILLY_AND_COMPANY-JP201702001120

PATIENT
  Age: 70 Year
  Sex: Male
  Weight: 80 kg

DRUGS (6)
  1. G LASTA [Concomitant]
     Active Substance: PEGFILGRASTIM
     Indication: PROPHYLAXIS
     Dosage: 3.6 MG, UNK
     Route: 058
     Dates: start: 20170115, end: 20170115
  2. DECADRON                           /00016002/ [Concomitant]
     Active Substance: DEXAMETHASONE
     Indication: PROPHYLAXIS
     Dosage: 8 MG, DAILY
     Route: 048
     Dates: start: 20170114, end: 20170115
  3. DEXART [Concomitant]
     Active Substance: DEXAMETHASONE SODIUM PHOSPHATE
     Indication: PROPHYLAXIS
     Dosage: 6.6 MG, DAILY
     Route: 041
     Dates: start: 20170113, end: 20170113
  4. CYRAMZA [Suspect]
     Active Substance: RAMUCIRUMAB
     Indication: LUNG ADENOCARCINOMA STAGE IV
     Dosage: 800 MG, OTHER
     Route: 041
     Dates: start: 20170113, end: 20170113
  5. DOCETAXEL. [Suspect]
     Active Substance: DOCETAXEL
     Indication: LUNG ADENOCARCINOMA STAGE IV
     Dosage: 110 MG, OTHER
     Route: 041
     Dates: start: 20170113, end: 20170113
  6. DOCETAXEL. [Suspect]
     Active Substance: DOCETAXEL
     Dosage: 90 MG, UNK
     Route: 041
     Dates: start: 20170206, end: 20170321

REACTIONS (5)
  - Stomatitis [Recovered/Resolved]
  - Malignant neoplasm progression [Fatal]
  - Oesophagitis [Recovered/Resolved]
  - Pharyngeal inflammation [Recovered/Resolved]
  - Febrile neutropenia [Recovered/Resolved]

NARRATIVE: CASE EVENT DATE: 20170118
